FAERS Safety Report 10076935 (Version 1)
Quarter: 2014Q2

REPORT INFORMATION
  Report Type: Spontaneous
  Country: PL (occurrence: PL)
  Receive Date: 20140414
  Receipt Date: 20140414
  Transmission Date: 20141212
  Serious: Yes (Other)
  Sender: FDA-Public Use
  Company Number: PL-GLAXOSMITHKLINE-B0972158A

PATIENT
  Age: 38 Year
  Sex: Female
  Weight: 88 kg

DRUGS (1)
  1. DUAC [Suspect]
     Indication: PRODUCT USED FOR UNKNOWN INDICATION
     Route: 061
     Dates: start: 20140131, end: 20140201

REACTIONS (8)
  - Laryngeal oedema [Recovered/Resolved]
  - Dermatitis contact [Recovered/Resolved]
  - Erythema [Recovered/Resolved]
  - Burning sensation [Recovered/Resolved]
  - Face oedema [Recovered/Resolved]
  - Face oedema [Recovered/Resolved]
  - Application site pruritus [Recovered/Resolved]
  - Rash maculo-papular [Recovered/Resolved]
